FAERS Safety Report 9370674 (Version 2)
Quarter: 2013Q4

REPORT INFORMATION
  Report Type: Spontaneous
  Country: US (occurrence: US)
  Receive Date: 20130626
  Receipt Date: 20131010
  Transmission Date: 20140711
  Serious: Yes (Other)
  Sender: FDA-Public Use
  Company Number: US-B.I. PHARMACEUTICALS,INC./RIDGEFIELD-2013-BI-17611BP

PATIENT
  Age: 97 Year
  Sex: Male
  Weight: 81 kg

DRUGS (13)
  1. COMBIVENT [Suspect]
     Indication: CHRONIC OBSTRUCTIVE PULMONARY DISEASE
     Dosage: STRENGTH: 20 MCG / 100 MCG; DAILY DOSE: 80 MCG/400 MCG
     Route: 055
     Dates: start: 20130617
  2. ICAPS [Concomitant]
     Indication: EYE DISORDER
     Dosage: 2 ANZ
     Route: 048
  3. OMEPRAZOLE [Concomitant]
     Indication: GASTROOESOPHAGEAL REFLUX DISEASE
     Dosage: 20 MG
     Route: 048
  4. ALENDRONATE [Concomitant]
     Indication: MINERAL SUPPLEMENTATION
     Dosage: 10 MG
     Route: 048
  5. LIDODERM PATCH [Concomitant]
     Dosage: FORMULATION: PATCH
     Route: 061
  6. METOPROLOL [Concomitant]
     Indication: HYPERTENSION
     Dosage: 12.5 MG
     Route: 048
  7. CALTRATE [Concomitant]
     Indication: MINERAL SUPPLEMENTATION
     Dosage: 1 ANZ
     Route: 048
  8. BABY ASPIRIN [Concomitant]
     Dosage: 81 MG
     Route: 048
  9. HYDROCHLOROTHIAZIDE [Concomitant]
     Indication: HYPERTENSION
     Dosage: 12.5 MG
     Route: 048
  10. SIMVASTATIN [Concomitant]
     Indication: BLOOD CHOLESTEROL INCREASED
     Dosage: 20 MG
     Route: 048
  11. WARFARIN [Concomitant]
     Dosage: 2.5 MG
     Route: 048
  12. WARFARIN [Concomitant]
     Dosage: 5 MG
     Route: 048
  13. NITROGLYCERIN PATCH [Concomitant]
     Dosage: FORMULATION: PATCH
     Route: 061

REACTIONS (1)
  - Chromatopsia [Not Recovered/Not Resolved]
